FAERS Safety Report 8302114-2 (Version None)
Quarter: 2012Q2

REPORT INFORMATION
  Report Type: 
  Country: None (occurrence: None)
  Receive Date: 20120419
  Receipt Date: 20120321
  Transmission Date: 20120825
  Serious: Yes (Hospitalization)
  Sender: FDA-Public Use
  Company Number: 2012031760

PATIENT
  Age: 33 Year
  Sex: Female
  Weight: 63.5036 kg

DRUGS (11)
  1. LEXAPRO [Concomitant]
  2. QVAR [Concomitant]
  3. AMOXICILLIN [Concomitant]
  4. HIZENTRA [Suspect]
  5. HIZENTRA [Suspect]
  6. NORETHINDRONE [Concomitant]
  7. HIZENTRA [Suspect]
     Indication: IMMUNODEFICIENCY COMMON VARIABLE
     Dosage: 11 G 1/WEEK, 1 GM 5 ML VIAL;55 ML IN 3-4 SITES OVER 1.5-2 HOURS SUBCUTANEOUS (2 GM 10 ML VIAL ; (4 G
     Route: 058
  8. FORADIL [Concomitant]
  9. ALBUTEROL [Concomitant]
  10. SINGULAIR [Concomitant]
  11. LORATADINE [Concomitant]

REACTIONS (2)
  - INFECTION [None]
  - FATIGUE [None]
